FAERS Safety Report 14379822 (Version 1)
Quarter: 2018Q1

REPORT INFORMATION
  Report Type: Spontaneous
  Country: US (occurrence: US)
  Receive Date: 20180112
  Receipt Date: 20180112
  Transmission Date: 20180509
  Serious: No
  Sender: FDA-Public Use
  Company Number: US-PFIZER INC-2018003694

PATIENT
  Age: 68 Year
  Sex: Female
  Weight: 90.71 kg

DRUGS (2)
  1. ENALAPRILAT. [Suspect]
     Active Substance: ENALAPRILAT
     Indication: HYPERTENSION
     Dosage: UNK, 2X/DAY
     Route: 065
  2. ELIQUIS [Suspect]
     Active Substance: APIXABAN
     Dosage: UNK UNK, 2X/DAY
     Route: 065
     Dates: start: 20171214

REACTIONS (2)
  - Rash [Unknown]
  - Cough [Recovered/Resolved]

NARRATIVE: CASE EVENT DATE: 20171215
